FAERS Safety Report 7550923-X (Version None)
Quarter: 2011Q2

REPORT INFORMATION
  Report Type: 
  Country: None (occurrence: None)
  Receive Date: 20110616
  Receipt Date: 20110602
  Transmission Date: 20111010
  Serious: Yes (Life-Threatening, Hospitalization, Disabling)
  Sender: FDA-Public Use
  Company Number: IL-CELGENEUS-082-C5013-10060208

PATIENT
  Sex: Male
  Weight: 75 kg

DRUGS (17)
  1. LENALIDOMIDE [Suspect]
     Route: 048
     Dates: end: 20100602
  2. SIMVACOR [Concomitant]
     Dosage: 20 MILLIGRAM
     Route: 048
     Dates: start: 20100101
  3. RED BLOOD CELLS [Concomitant]
     Dosage: 1 UNIT
     Route: 051
     Dates: start: 20100520, end: 20100520
  4. TRITACE [Concomitant]
     Indication: HYPERTENSION
     Dosage: 3.75 MILLIGRAM
     Route: 048
     Dates: start: 20100501
  5. LENALIDOMIDE [Suspect]
     Route: 048
     Dates: start: 20100616
  6. MICROPIRIN [Concomitant]
     Indication: HYPERTENSION
     Dosage: 100 MILLIGRAM
     Route: 048
     Dates: start: 20010101, end: 20100609
  7. MAXITROL OINTMENT [Concomitant]
     Route: 047
     Dates: start: 20100101
  8. MOXIPEN [Concomitant]
     Indication: URINARY TRACT INFECTION
     Dosage: 1500 MILLIGRAM
     Route: 048
     Dates: start: 20100515, end: 20100522
  9. BENZALKONIUM CHLORIDE [Concomitant]
     Route: 047
     Dates: start: 20100501
  10. FLAGYL [Concomitant]
     Indication: URINARY TRACT INFECTION
     Dosage: 1500 MILLIGRAM
     Route: 051
     Dates: start: 20100511, end: 20100514
  11. CEFUROXIME [Concomitant]
     Indication: URINARY TRACT INFECTION
     Dosage: 2250 MILLIGRAM
     Route: 051
     Dates: start: 20100511, end: 20100514
  12. LENALIDOMIDE [Suspect]
     Indication: MANTLE CELL LYMPHOMA
     Dosage: 10 MILLIGRAM
     Route: 048
     Dates: start: 20100505, end: 20100525
  13. DISOTHIAZIDE [Concomitant]
     Indication: HYPERTENSION
     Dosage: 25 MILLIGRAM
     Route: 048
     Dates: start: 20010101, end: 20100511
  14. ENALADEX [Concomitant]
     Indication: HYPERTENSION
     Dosage: 20 MILLIGRAM
     Route: 048
     Dates: start: 20010101, end: 20100511
  15. TRIDERM [Concomitant]
     Route: 061
     Dates: start: 20100515, end: 20100524
  16. VITAMIN D [Concomitant]
     Indication: VITAMIN D DEFICIENCY
     Dosage: 400 IU (INTERNATIONAL UNIT)
     Route: 048
     Dates: start: 20100101
  17. NORVASC [Concomitant]
     Indication: HYPERTENSION
     Dosage: 5 MILLIGRAM
     Route: 048
     Dates: start: 20010101

REACTIONS (1)
  - CEREBROVASCULAR ACCIDENT [None]
